FAERS Safety Report 11895098 (Version 1)
Quarter: 2016Q1

REPORT INFORMATION
  Report Type: Spontaneous
  Country: US (occurrence: None)
  Receive Date: 20160106
  Receipt Date: 20160106
  Transmission Date: 20160526
  Serious: Yes (Hospitalization)
  Sender: FDA-Public Use
  Company Number: None

PATIENT
  Age: 58 Year
  Sex: Female
  Weight: 79.83 kg

DRUGS (2)
  1. LEVOTHYROXINE. [Concomitant]
     Active Substance: LEVOTHYROXINE
  2. PICATO [Suspect]
     Active Substance: INGENOL MEBUTATE
     Indication: ACTINIC KERATOSIS
     Dosage: APPLIED TO A SURFACE, USUALLY THE SKIN
     Route: 061
     Dates: start: 20160101, end: 20160102

REACTIONS (13)
  - Swelling face [None]
  - Nausea [None]
  - Ear discomfort [None]
  - Dizziness [None]
  - Erythema [None]
  - Sinus disorder [None]
  - Dyspnoea [None]
  - Impaired work ability [None]
  - Ocular discomfort [None]
  - Blister [None]
  - Chest discomfort [None]
  - Vertigo [None]
  - Balance disorder [None]

NARRATIVE: CASE EVENT DATE: 20160102
